FAERS Safety Report 5654228-3 (Version None)
Quarter: 2008Q1

REPORT INFORMATION
  Report Type: 
  Country: None (occurrence: None)
  Receive Date: 20080305
  Receipt Date: 20080212
  Transmission Date: 20080703
  Serious: Yes (Disabling)
  Sender: FDA-Public Use
  Company Number: APP200800119

PATIENT
  Age: 18 Year
  Sex: Male

DRUGS (4)
  1. SENSORCAINE-MPF WITH EPINEPHRINE (BUPIVACAINE HYDROCHLORIDE) [Suspect]
     Indication: MUSCULOSKELETAL PAIN
     Dosage: 100 ML
     Dates: start: 20050923
  2. SENSORCAINE-MPF WITH EPINEPHRINE (BUPIVACAINE HYDROCHLORIDE) [Suspect]
     Indication: MUSCULOSKELETAL PAIN
     Dosage: 100 ML
     Dates: start: 20060223
  3. DONJOY PAIN PUMP [Suspect]
     Indication: MUSCULOSKELETAL PAIN
     Dates: start: 20050923
  4. DONJOY PAIN PUMP [Suspect]
     Indication: MUSCULOSKELETAL PAIN
     Dates: start: 20060223

REACTIONS (2)
  - CHONDROLYSIS [None]
  - MUSCULOSKELETAL PAIN [None]
